FAERS Safety Report 4868457-X (Version None)
Quarter: 2005Q4

REPORT INFORMATION
  Report Type: 
  Country: None (occurrence: None)
  Receive Date: 20051229
  Receipt Date: 20020903
  Transmission Date: 20060501
  Serious: Yes (Death, Other)
  Sender: FDA-Public Use
  Company Number: JP-ABBOTT-02P-087-0199171-00

PATIENT
  Sex: Female
  Weight: 50 kg

DRUGS (7)
  1. KLARICID [Suspect]
     Indication: HELICOBACTER INFECTION
     Route: 048
     Dates: start: 20020828, end: 20020828
  2. LANSOPRAZOLE [Suspect]
     Indication: HELICOBACTER INFECTION
     Route: 048
     Dates: start: 20020828, end: 20020828
  3. AMOXICILLIN [Suspect]
     Indication: HELICOBACTER INFECTION
     Route: 048
     Dates: start: 20020828, end: 20020828
  4. AMEZINIUM METILSULFATE [Concomitant]
     Route: 048
  5. DRIED THYROID [Concomitant]
     Indication: HYPOTHYROIDISM
     Route: 048
  6. FAMOTIDINE [Concomitant]
     Indication: GASTRIC ULCER
     Route: 048
  7. LEVOTHYROXINE SODIUM [Concomitant]
     Indication: HYPOTHYROIDISM
     Route: 048
     Dates: end: 20020901

REACTIONS (4)
  - DEPRESSED LEVEL OF CONSCIOUSNESS [None]
  - DISSEMINATED INTRAVASCULAR COAGULATION [None]
  - HYPOGLYCAEMIA [None]
  - RESPIRATORY ARREST [None]
